FAERS Safety Report 9412204 (Version 1)
Quarter: 2013Q3

REPORT INFORMATION
  Report Type: Spontaneous
  Country: US (occurrence: None)
  Receive Date: 20130719
  Receipt Date: 20130719
  Transmission Date: 20140515
  Serious: Yes (Other)
  Sender: FDA-Public Use
  Company Number: None

PATIENT
  Sex: Female

DRUGS (2)
  1. TRAMADOL HCL [Suspect]
     Indication: PAIN
     Dosage: 1 TABLET EVERY 6-8 HRS
  2. LIDODERM [Suspect]
     Indication: PAIN
     Dates: start: 20120125

REACTIONS (1)
  - Hepatomegaly [None]
